FAERS Safety Report 16599065 (Version 1)
Quarter: 2019Q3

REPORT INFORMATION
  Report Type: Spontaneous
  Country: US (occurrence: US)
  Receive Date: 20190719
  Receipt Date: 20190719
  Transmission Date: 20191004
  Serious: No
  Sender: FDA-Public Use
  Company Number: US-IMPAX LABORATORIES, LLC-2018-IPXL-02546

PATIENT
  Age: 80 Year
  Sex: Male
  Weight: 90 kg

DRUGS (10)
  1. METOPROLOL SUCCINATE. [Concomitant]
     Active Substance: METOPROLOL SUCCINATE
     Indication: HYPERTENSION
     Dosage: UNK
     Route: 048
  2. LOSARTAN. [Concomitant]
     Active Substance: LOSARTAN
     Indication: HYPERTENSION
     Dosage: UNK
     Route: 048
  3. METFORMIN HCL [Concomitant]
     Active Substance: METFORMIN HYDROCHLORIDE
     Indication: TYPE 2 DIABETES MELLITUS
     Dosage: UNK
     Route: 065
  4. SIMVASTATIN. [Concomitant]
     Active Substance: SIMVASTATIN
     Indication: BLOOD CHOLESTEROL INCREASED
     Dosage: UNK
     Route: 048
  5. NABUMETONE IR [Suspect]
     Active Substance: NABUMETONE
     Indication: PAIN
  6. AMLODIPINE BESYLATE. [Concomitant]
     Active Substance: AMLODIPINE BESYLATE
     Indication: HYPERTENSION
     Dosage: UNK
     Route: 048
  7. POTASSIUM CITRATE. [Concomitant]
     Active Substance: POTASSIUM CITRATE
     Indication: SUPPLEMENTATION THERAPY
     Dosage: UNK
     Route: 048
  8. RABEPRAZOLE [Concomitant]
     Active Substance: RABEPRAZOLE
     Indication: GASTROOESOPHAGEAL REFLUX DISEASE
     Dosage: UNK
     Route: 048
  9. NABUMETONE IR [Suspect]
     Active Substance: NABUMETONE
     Indication: SCIATICA
     Dosage: 750 MG, ONE TABLET, TWICE DAILY
     Route: 048
     Dates: start: 20180723
  10. NABUMETONE IR [Suspect]
     Active Substance: NABUMETONE
     Indication: PRODUCT USE IN UNAPPROVED INDICATION

REACTIONS (1)
  - Drug ineffective for unapproved indication [Not Recovered/Not Resolved]
